FAERS Safety Report 16708228 (Version 1)
Quarter: 2019Q3

REPORT INFORMATION
  Report Type: Report from Study
  Country: None (occurrence: US)
  Receive Date: 20190816
  Receipt Date: 20190816
  Transmission Date: 20191004
  Serious: Yes (Hospitalization, Other)
  Sender: FDA-Public Use
  Company Number: US-ABBVIE-19K-163-2649982-00

PATIENT
  Age: 73 Year
  Sex: Male
  Weight: 81.72 kg

DRUGS (2)
  1. HUMIRA [Suspect]
     Active Substance: ADALIMUMAB
     Dosage: CITRATE FREE
     Route: 058
  2. HUMIRA [Suspect]
     Active Substance: ADALIMUMAB
     Indication: PSORIATIC ARTHROPATHY
     Route: 058
     Dates: end: 2018

REACTIONS (9)
  - Headache [Recovered/Resolved]
  - Post procedural infection [Recovering/Resolving]
  - Psoriasis [Recovered/Resolved]
  - Pyrexia [Recovered/Resolved]
  - Gallbladder operation [Recovering/Resolving]
  - Injection site pain [Unknown]
  - Musculoskeletal stiffness [Unknown]
  - Pyrexia [Recovered/Resolved]
  - Immunodeficiency [Unknown]

NARRATIVE: CASE EVENT DATE: 201806
